FAERS Safety Report 8817787 (Version 1)
Quarter: 2012Q4

REPORT INFORMATION
  Report Type: 
  Country: JP (occurrence: JP)
  Receive Date: 20121001
  Receipt Date: 20121001
  Transmission Date: 20130627
  Serious: Yes (Other)
  Sender: FDA-Public Use
  Company Number: PHHY2012JP082354

PATIENT
  Age: 61 Year
  Sex: Female

DRUGS (2)
  1. DICLOFENAC [Suspect]
     Indication: BACK PAIN
  2. DICLOFENAC [Suspect]
     Indication: OSTEOPOROSIS
     Route: 048

REACTIONS (11)
  - Post procedural complication [Unknown]
  - Peritoneal abscess [Unknown]
  - Thrombosis [Unknown]
  - Sepsis [Unknown]
  - Fungal infection [Unknown]
  - Peritonitis [Unknown]
  - Gastrointestinal perforation [Unknown]
  - Large intestine perforation [Unknown]
  - Abdominal pain lower [Unknown]
  - Perforated ulcer [Unknown]
  - Diarrhoea [Unknown]
